FAERS Safety Report 13762531 (Version 1)
Quarter: 2017Q3

REPORT INFORMATION
  Report Type: Spontaneous
  Country: US (occurrence: US)
  Receive Date: 20170718
  Receipt Date: 20170718
  Transmission Date: 20171127
  Serious: Yes (Hospitalization)
  Sender: FDA-Public Use
  Company Number: None

PATIENT
  Age: 57 Year
  Sex: Male
  Weight: 127 kg

DRUGS (1)
  1. SULFAMETHOXAZOLE/TRIMETHOPRIM [Suspect]
     Active Substance: SULFAMETHOXAZOLE\TRIMETHOPRIM
     Indication: SINUSITIS
     Route: 048
     Dates: start: 20170228, end: 20170311

REACTIONS (9)
  - Vomiting [None]
  - Syncope [None]
  - Nausea [None]
  - Hepatic enzyme increased [None]
  - Anaphylactic reaction [None]
  - Drug reaction with eosinophilia and systemic symptoms [None]
  - Rash [None]
  - Blood creatinine increased [None]
  - Blood urea increased [None]

NARRATIVE: CASE EVENT DATE: 20170316
